FAERS Safety Report 7455291-X (Version None)
Quarter: 2011Q2

REPORT INFORMATION
  Report Type: 
  Country: None (occurrence: None)
  Receive Date: 20110503
  Receipt Date: 20110422
  Transmission Date: 20111010
  Serious: Yes (Other)
  Sender: FDA-Public Use
  Company Number: AU-PFIZER INC-2011091922

PATIENT
  Sex: Female

DRUGS (5)
  1. OXYNORM [Suspect]
     Dosage: 5 MG, AS NEEDED
     Route: 048
     Dates: start: 20100708, end: 20100708
  2. PARACETAMOL [Suspect]
  3. IBUPROFEN [Concomitant]
  4. ONDANSERTRON HYDROCHLORIDE [Suspect]
  5. MORPHINE SULFATE [Suspect]
     Route: 048

REACTIONS (2)
  - HALLUCINATION [None]
  - ABNORMAL DREAMS [None]
